FAERS Safety Report 8548659-1 (Version None)
Quarter: 2012Q3

REPORT INFORMATION
  Report Type: 
  Country: None (occurrence: None)
  Receive Date: 20120717
  Receipt Date: 20120703
  Transmission Date: 20120928
  Serious: Yes (Other)
  Sender: FDA-Public Use
  Company Number: FK201201873

PATIENT
  Age: 48 Year
  Sex: Male

DRUGS (4)
  1. DACARBAZINE [Concomitant]
  2. DOXORUBICIN HCL [Suspect]
     Indication: HODGKIN'S DISEASE
  3. BLEOMYCIN SULFATE [Suspect]
     Indication: HODGKIN'S DISEASE
  4. VINBLASTINE SULFATE [Concomitant]

REACTIONS (11)
  - CHEST DISCOMFORT [None]
  - NEUTROPENIA [None]
  - APHTHOUS STOMATITIS [None]
  - PERICARDIAL EFFUSION [None]
  - DIASTOLIC DYSFUNCTION [None]
  - CARDIOMEGALY [None]
  - JOINT SWELLING [None]
  - TACHYCARDIA [None]
  - OEDEMA [None]
  - ONYCHOMYCOSIS [None]
  - COUGH [None]
